FAERS Safety Report 5487411-0 (Version None)
Quarter: 2007Q4

REPORT INFORMATION
  Report Type: 
  Country: None (occurrence: None)
  Receive Date: 20071016
  Receipt Date: 20071004
  Transmission Date: 20080405
  Serious: Yes (Hospitalization)
  Sender: FDA-Public Use
  Company Number: FR-PFIZER INC-2007085606

PATIENT
  Sex: Male

DRUGS (6)
  1. ZOLOFT [Suspect]
     Indication: DEPRESSION
     Route: 048
  2. DOGMATIL [Suspect]
     Indication: DEPRESSION
     Route: 048
  3. KARDEGIC [Suspect]
     Route: 048
  4. VIRLIX [Suspect]
     Route: 048
  5. ALPRESS [Suspect]
     Indication: HYPERTENSION
     Route: 048
  6. ALDACTAZIDE [Suspect]
     Indication: HYPERTENSION
     Route: 048

REACTIONS (4)
  - EXTRAPYRAMIDAL DISORDER [None]
  - FALL [None]
  - MALAISE [None]
  - ORTHOSTATIC HYPOTENSION [None]
